FAERS Safety Report 9556660 (Version 1)
Quarter: 2013Q3

REPORT INFORMATION
  Report Type: Spontaneous
  Country: CN (occurrence: None)
  Receive Date: 20130924
  Receipt Date: 20130924
  Transmission Date: 20140515
  Serious: Yes (Other)
  Sender: FDA-Public Use
  Company Number: 2013000252

PATIENT
  Age: 58 Year
  Sex: Male
  Weight: 60 kg

DRUGS (4)
  1. ACEON [Suspect]
     Indication: CORONARY ARTERY DISEASE
     Route: 048
     Dates: start: 20121007, end: 20121016
  2. ACETYLSALICYLIC ACID (ACETYLSALICYLIC ACID) [Concomitant]
  3. CLOPIDOGREL (CLOPIDOGREL) [Concomitant]
  4. METOPROLOL (METOPROLOL) [Concomitant]

REACTIONS (2)
  - Lung infection [None]
  - Cough [None]
